FAERS Safety Report 9519776 (Version 1)
Quarter: 2013Q3

REPORT INFORMATION
  Report Type: Spontaneous
  Country: US (occurrence: US)
  Receive Date: 20130912
  Receipt Date: 20130912
  Transmission Date: 20140515
  Serious: No
  Sender: FDA-Public Use
  Company Number: US-B.I. PHARMACEUTICALS,INC./RIDGEFIELD-2013-BI-28276BP

PATIENT
  Age: 79 Year
  Sex: Female
  Weight: 79 kg

DRUGS (9)
  1. PRADAXA [Suspect]
     Indication: PROPHYLAXIS
     Dosage: 300 MG
     Route: 048
     Dates: start: 201304
  2. PRADAXA [Suspect]
     Indication: ATRIAL FLUTTER
  3. DILTIZEM [Concomitant]
  4. LASIX [Concomitant]
  5. ZYRTEC [Concomitant]
  6. GLUCOAMINE - CHONDROITIN [Concomitant]
  7. ASPIRIN [Concomitant]
     Dosage: 81 MG
     Route: 048
  8. LIPITOR [Concomitant]
  9. TOPROL [Concomitant]

REACTIONS (2)
  - Vaginal haemorrhage [Not Recovered/Not Resolved]
  - Off label use [Not Recovered/Not Resolved]
